FAERS Safety Report 9126819 (Version 1)
Quarter: 2013Q1

REPORT INFORMATION
  Report Type: Spontaneous
  Country: CH (occurrence: CH)
  Receive Date: 20130122
  Receipt Date: 20130122
  Transmission Date: 20140127
  Serious: Yes (Hospitalization)
  Sender: FDA-Public Use
  Company Number: CH-VERTEX PHARMACEUTICALS INC.-2013-000929

PATIENT
  Sex: Female

DRUGS (3)
  1. INCIVO [Suspect]
     Indication: HEPATITIS C
     Dosage: DOSAGE FORM: TABLET
     Dates: start: 20120511, end: 20120713
  2. PEGASYS [Concomitant]
     Dosage: DOSAGE FORM: UNSPECIFIED
  3. COPEGUS [Concomitant]
     Dosage: DOSAGE FORM: UNSPECIFIED

REACTIONS (2)
  - Pyrexia [Unknown]
  - Rash [Recovered/Resolved]
